APPROVED DRUG PRODUCT: POLYETHYLENE GLYCOL 3350
Active Ingredient: POLYETHYLENE GLYCOL 3350
Strength: 17GM/SCOOPFUL
Dosage Form/Route: FOR SOLUTION;ORAL
Application: A202850 | Product #001
Applicant: ANI PHARMACEUTICALS INC
Approved: Dec 15, 2015 | RLD: No | RS: No | Type: OTC